FAERS Safety Report 9129383 (Version 1)
Quarter: 2013Q1

REPORT INFORMATION
  Report Type: Spontaneous
  Country: IN (occurrence: IN)
  Receive Date: 20130125
  Receipt Date: 20130125
  Transmission Date: 20140127
  Serious: Yes (Death, Other)
  Sender: FDA-Public Use
  Company Number: IN-SPECTRUM PHARMACEUTICALS, INC.-13-F-IN-00030

PATIENT
  Age: 14 Year
  Sex: Male

DRUGS (2)
  1. FLUOROURACIL [Suspect]
     Indication: NASOPHARYNGEAL CANCER
     Dosage: 750 MG/M2, OVER 6 HOURS ON DAYS 2 TO 5, REPEATED EVERY 3 WEEKS
     Route: 042
  2. CISPLATIN [Suspect]
     Indication: NASOPHARYNGEAL CANCER
     Dosage: 50 MG/M2, ON DAYS 1 AND 2, REPEATED EVERY 3 WEEKS
     Route: 065

REACTIONS (14)
  - Congestive cardiomyopathy [Recovered/Resolved]
  - Death [Fatal]
  - Cardiac arrest [Recovered/Resolved]
  - Circulatory collapse [Recovered/Resolved]
  - Loss of consciousness [Recovered/Resolved]
  - Dizziness [Recovered/Resolved]
  - Tachypnoea [Recovered/Resolved]
  - Rales [Recovered/Resolved]
  - Tachycardia [Recovered/Resolved]
  - Hypotension [Recovered/Resolved]
  - Cardiomegaly [Recovered/Resolved]
  - Pulmonary oedema [Recovered/Resolved]
  - Sinus tachycardia [Recovered/Resolved]
  - Ejection fraction decreased [Recovered/Resolved]
